FAERS Safety Report 4315218-6 (Version None)
Quarter: 2004Q1

REPORT INFORMATION
  Report Type: 
  Country: None (occurrence: None)
  Receive Date: 20040310
  Receipt Date: 20040225
  Transmission Date: 20041129
  Serious: Yes (Death)
  Sender: FDA-Public Use
  Company Number: US_0402101063

PATIENT
  Age: 62 Year
  Sex: Female

DRUGS (3)
  1. GEMZAR [Suspect]
     Indication: OVARIAN CANCER
     Dosage: 800 MG/M2 OTHER
     Route: 050
  2. CARBOPLATIN [Concomitant]
  3. PACLITAXEL [Concomitant]

REACTIONS (6)
  - CLOSTRIDIUM BACTERAEMIA [None]
  - INTESTINAL INFARCTION [None]
  - NECROTISING COLITIS [None]
  - NEUTROPENIA [None]
  - SEPTIC SHOCK [None]
  - VASCULITIS [None]
